FAERS Safety Report 8216945-0 (Version None)
Quarter: 2012Q1

REPORT INFORMATION
  Report Type: 
  Country: None (occurrence: None)
  Receive Date: 20120319
  Receipt Date: 20120305
  Transmission Date: 20120608
  Serious: Yes (Other)
  Sender: FDA-Public Use
  Company Number: CA-BRISTOL-MYERS SQUIBB COMPANY-16434425

PATIENT
  Sex: Male

DRUGS (14)
  1. DACTINOMYCIN [Suspect]
     Indication: METASTASES TO LUNG
  2. IFOSFAMIDE [Suspect]
     Indication: NEPHROBLASTOMA
     Dosage: 1DF = 117G/M2 13 CYCLES
  3. CARBOPLATIN [Suspect]
     Indication: NEPHROBLASTOMA
     Dosage: 13 CYCLES
  4. VINCRISTINE [Suspect]
     Indication: NEPHROBLASTOMA
  5. ETOPOSIDE [Suspect]
     Indication: METASTASES TO LUNG
     Dosage: 1 DF= 6.5G/M2 13 CYCLES
  6. VINCRISTINE [Suspect]
     Indication: METASTASES TO LUNG
  7. CYCLOPHOSPHAMIDE [Suspect]
     Indication: NEPHROBLASTOMA
  8. ADRIAMYCIN PFS [Suspect]
     Indication: METASTASES TO LUNG
  9. CYCLOPHOSPHAMIDE [Suspect]
     Indication: METASTASES TO LUNG
  10. DACTINOMYCIN [Suspect]
     Indication: NEPHROBLASTOMA
  11. IFOSFAMIDE [Suspect]
     Indication: METASTASES TO LUNG
     Dosage: 1DF = 117G/M2 13 CYCLES
  12. ADRIAMYCIN PFS [Suspect]
     Indication: NEPHROBLASTOMA
  13. ETOPOSIDE [Suspect]
     Indication: NEPHROBLASTOMA
     Dosage: 1 DF= 6.5G/M2 13 CYCLES
  14. CARBOPLATIN [Suspect]
     Indication: METASTASES TO LUNG
     Dosage: 13 CYCLES

REACTIONS (3)
  - FANCONI SYNDROME ACQUIRED [None]
  - MYOPATHY [None]
  - RICKETS [None]
